FAERS Safety Report 10080300 (Version 2)
Quarter: 2014Q2

REPORT INFORMATION
  Report Type: Spontaneous
  Country: US (occurrence: US)
  Receive Date: 20140415
  Receipt Date: 20140515
  Transmission Date: 20141212
  Serious: Yes (Other)
  Sender: FDA-Public Use
  Company Number: US-RB-066078-14

PATIENT
  Age: 42 Year
  Sex: Female

DRUGS (5)
  1. SUBOXONE FILM [Suspect]
     Dosage: SUBOXONE FILM
     Route: 060
     Dates: start: 201404, end: 201404
  2. SUBOXONE FILM [Suspect]
     Indication: DRUG DEPENDENCE
     Dosage: SUBOXONE FILM; CUT THE FILM
     Route: 060
     Dates: start: 201404, end: 201404
  3. SUBOXONE FILM [Suspect]
     Dosage: SUBOXONE FILM; CUTTING ANTDSELF TAPERING
     Route: 060
     Dates: start: 201404
  4. LYRICA [Concomitant]
     Indication: PAIN
     Route: 048
  5. ATIVAN [Concomitant]
     Indication: ANXIETY
     Route: 048

REACTIONS (7)
  - Off label use [Recovered/Resolved]
  - Convulsion [Unknown]
  - Hallucination [Unknown]
  - Drug withdrawal syndrome [Recovered/Resolved]
  - Dyspnoea [Not Recovered/Not Resolved]
  - Wrong technique in drug usage process [Not Recovered/Not Resolved]
  - Intentional underdose [Not Recovered/Not Resolved]
